FAERS Safety Report 23543154 (Version 2)
Quarter: 2024Q2

REPORT INFORMATION
  Report Type: Spontaneous
  Country: JP (occurrence: JP)
  Receive Date: 20240220
  Receipt Date: 20240404
  Transmission Date: 20240715
  Serious: Yes (Life-Threatening, Hospitalization)
  Sender: FDA-Public Use
  Company Number: JP-DSJP-DSJ-2024-106273

PATIENT
  Age: 65 Year
  Sex: Male

DRUGS (11)
  1. BEVACIZUMAB [Suspect]
     Active Substance: BEVACIZUMAB
     Indication: Colon cancer
     Dosage: 250 MILLIGRAM
     Route: 041
     Dates: start: 20231027, end: 2023
  2. PALONOSETRON [Concomitant]
     Active Substance: PALONOSETRON
     Dosage: UNK
     Route: 065
  3. DEXAMETHASONE SODIUM PHOSPHATE [Concomitant]
     Active Substance: DEXAMETHASONE PHOSPHATE\DEXAMETHASONE SODIUM PHOSPHATE
     Dosage: UNK
     Route: 065
  4. LEVOLEUCOVORIN CALCIUM [Concomitant]
     Active Substance: LEVOLEUCOVORIN CALCIUM
     Dosage: UNK
     Route: 065
     Dates: start: 20231027, end: 2023
  5. LEVOLEUCOVORIN CALCIUM [Concomitant]
     Active Substance: LEVOLEUCOVORIN CALCIUM
     Dosage: UNK
     Route: 065
     Dates: start: 20231222
  6. OXALIPLATIN [Concomitant]
     Active Substance: OXALIPLATIN
     Dosage: UNK
     Route: 065
     Dates: start: 20231027, end: 2023
  7. OXALIPLATIN [Concomitant]
     Active Substance: OXALIPLATIN
     Dosage: UNK
     Route: 065
     Dates: start: 20231222
  8. FLUOROURACIL [Concomitant]
     Active Substance: FLUOROURACIL
     Dosage: UNK
     Route: 065
     Dates: start: 20231027, end: 2023
  9. FLUOROURACIL [Concomitant]
     Active Substance: FLUOROURACIL
     Dosage: UNK
     Route: 065
     Dates: start: 20231222
  10. LOXOPROFEN SODIUM [Concomitant]
     Active Substance: LOXOPROFEN SODIUM
     Dosage: UNK
     Route: 065
  11. REBAMIPIDE [Concomitant]
     Active Substance: REBAMIPIDE
     Dosage: UNK
     Route: 065

REACTIONS (2)
  - Tumour perforation [Recovering/Resolving]
  - Small intestinal perforation [Recovering/Resolving]

NARRATIVE: CASE EVENT DATE: 20231031
